FAERS Safety Report 9418340 (Version 1)
Quarter: 2013Q3

REPORT INFORMATION
  Report Type: Spontaneous
  Country: US (occurrence: US)
  Receive Date: 20130725
  Receipt Date: 20130725
  Transmission Date: 20140515
  Serious: No
  Sender: FDA-Public Use
  Company Number: US-B.I. PHARMACEUTICALS,INC./RIDGEFIELD-2013-BI-21380BP

PATIENT
  Age: 51 Year
  Sex: Male

DRUGS (6)
  1. COMBIVENT [Suspect]
     Indication: ASTHMA
     Dosage: STRENGTH: 20 MCG / 100 MCG; DOSE: 80 MCG/400 MCG
     Route: 055
     Dates: start: 20130612
  2. COMBIVENT [Suspect]
     Indication: ASTHMA
     Dosage: STRENGTH: 18 MCG / 103 MCG;DOSE: 144 MCG/824 MCG
     Route: 055
     Dates: start: 2003, end: 20130611
  3. SEROQUEL [Concomitant]
     Indication: INSOMNIA
     Dosage: 200 MG
     Route: 048
     Dates: start: 201212
  4. LAMICTAL [Concomitant]
     Indication: ANXIETY
     Dosage: 100 MG
     Route: 048
     Dates: start: 201306
  5. INDERAL [Concomitant]
     Indication: CLUSTER HEADACHE
     Dosage: 60 MG
     Route: 048
     Dates: start: 2011
  6. IMITREX [Concomitant]
     Indication: MIGRAINE
     Route: 048
     Dates: start: 2011

REACTIONS (6)
  - Wheezing [Not Recovered/Not Resolved]
  - Dyspnoea [Not Recovered/Not Resolved]
  - Asthma [Recovered/Resolved]
  - Sinus headache [Not Recovered/Not Resolved]
  - Off label use [Not Recovered/Not Resolved]
  - Off label use [Recovered/Resolved]
